FAERS Safety Report 25698081 (Version 1)
Quarter: 2025Q3

REPORT INFORMATION
  Report Type: Spontaneous
  Country: EU (occurrence: EU)
  Receive Date: 20250819
  Receipt Date: 20250819
  Transmission Date: 20251021
  Serious: Yes (Life-Threatening)
  Sender: PHARMAXIS
  Company Number: None

PATIENT
  Age: 77 Year
  Sex: Female
  Weight: 90 kg

DRUGS (1)
  1. MANNITOL [Suspect]
     Active Substance: MANNITOL
     Indication: Angle closure glaucoma
     Route: 048
     Dates: start: 20250714, end: 20250714

REACTIONS (1)
  - Anaphylactic shock [Recovered/Resolved]

NARRATIVE: CASE EVENT DATE: 20250714
